FAERS Safety Report 5679004-7 (Version None)
Quarter: 2008Q1

REPORT INFORMATION
  Report Type: 
  Country: None (occurrence: None)
  Receive Date: 20080325
  Receipt Date: 20080319
  Transmission Date: 20080703
  Serious: Yes (Other)
  Sender: FDA-Public Use
  Company Number: B0510988A

PATIENT
  Age: 20 Year
  Sex: Male
  Weight: 75 kg

DRUGS (6)
  1. RELENZA [Suspect]
     Indication: INFLUENZA
     Dosage: 10MG TWICE PER DAY
     Route: 055
     Dates: start: 20080301, end: 20080302
  2. CHINESE MEDICINE [Suspect]
     Indication: INFLUENZA
     Dosage: 3G TWICE PER DAY
     Route: 048
     Dates: start: 20080301, end: 20080303
  3. KLARICID [Suspect]
     Indication: UPPER RESPIRATORY TRACT INFLAMMATION
     Dosage: 200MG TWICE PER DAY
     Route: 048
     Dates: start: 20080301, end: 20080303
  4. MUCODYNE [Concomitant]
     Indication: UPPER RESPIRATORY TRACT INFLAMMATION
     Dosage: 1000MG PER DAY
     Route: 048
     Dates: start: 20080301, end: 20080303
  5. PENTCILLIN [Concomitant]
     Indication: UPPER RESPIRATORY TRACT INFLAMMATION
     Dosage: 1G PER DAY
     Route: 042
     Dates: start: 20080301, end: 20080301
  6. SOLULACT [Concomitant]
     Indication: DEHYDRATION
     Dosage: 500ML PER DAY
     Route: 042
     Dates: start: 20080301, end: 20080301

REACTIONS (2)
  - ABNORMAL BEHAVIOUR [None]
  - DAYDREAMING [None]
